FAERS Safety Report 5064325-1 (Version None)
Quarter: 2006Q3

REPORT INFORMATION
  Report Type: 
  Country: None (occurrence: None)
  Receive Date: 20060726
  Receipt Date: 20060712
  Transmission Date: 20061208
  Serious: Yes (Hospitalization)
  Sender: FDA-Public Use
  Company Number: US-2006-018789

PATIENT
  Age: 46 Year
  Sex: Female

DRUGS (5)
  1. BETASERON [Suspect]
     Indication: MULTIPLE SCLEROSIS
     Dosage: 8 MIU, EVERY 2D, SUBCUTANEOUS
     Route: 058
     Dates: start: 20030813
  2. BACLOFEN [Concomitant]
  3. TRAZODONE HCL [Concomitant]
  4. SYNTHROID [Concomitant]
  5. ZANAFLEX [Concomitant]

REACTIONS (4)
  - AMENORRHOEA [None]
  - ENDOMETRIAL HYPERTROPHY [None]
  - INJECTION SITE REACTION [None]
  - UTERINE HAEMORRHAGE [None]
